FAERS Safety Report 16745495 (Version 17)
Quarter: 2021Q4

REPORT INFORMATION
  Report Type: Spontaneous
  Country: US (occurrence: US)
  Receive Date: 20190827
  Receipt Date: 20211229
  Transmission Date: 20220303
  Serious: Yes (Hospitalization, Other)
  Sender: FDA-Public Use
  Company Number: US-PFIZER INC-2019365570

PATIENT
  Age: 61 Year
  Sex: Male
  Weight: 96 kg

DRUGS (22)
  1. LYRICA [Suspect]
     Active Substance: PREGABALIN
     Indication: Intervertebral disc protrusion
     Dosage: 100 MG, 3X/DAY
     Route: 048
     Dates: start: 20190422
  2. LYRICA [Suspect]
     Active Substance: PREGABALIN
     Indication: Neuropathy peripheral
     Dosage: 100 MG, 3 TIME A DAY AS NEEDED
     Route: 048
  3. LYRICA [Suspect]
     Active Substance: PREGABALIN
     Indication: Diabetic complication
  4. LYRICA [Suspect]
     Active Substance: PREGABALIN
     Indication: Spinal disorder
  5. LYRICA [Suspect]
     Active Substance: PREGABALIN
     Indication: Myelopathy
  6. LYRICA [Suspect]
     Active Substance: PREGABALIN
     Indication: Diabetic foot
  7. LYRICA [Suspect]
     Active Substance: PREGABALIN
     Indication: Pain
  8. LYRICA [Suspect]
     Active Substance: PREGABALIN
     Indication: Neuralgia
  9. LYRICA [Suspect]
     Active Substance: PREGABALIN
     Indication: Neuralgia
  10. XANAX [Suspect]
     Active Substance: ALPRAZOLAM
     Indication: Anxiety
     Dosage: 2 MG, 3X/DAY
  11. XANAX [Suspect]
     Active Substance: ALPRAZOLAM
     Indication: Insomnia
     Dosage: 50 MG, DAILY (HE TOOK XANAX 50 MG DAILY FOR 10 YEARS)
  12. XANAX [Suspect]
     Active Substance: ALPRAZOLAM
     Indication: Pain
  13. WARFARIN [Suspect]
     Active Substance: WARFARIN
     Dosage: UNK
  14. OXYCODONE [Concomitant]
     Active Substance: OXYCODONE
     Dosage: 300 MG, 1X/DAY
  15. SERTRALINE [Concomitant]
     Active Substance: SERTRALINE HYDROCHLORIDE
     Indication: Depression
     Dosage: 100 MG, 1X/DAY
  16. BACLOFEN [Concomitant]
     Active Substance: BACLOFEN
     Indication: Muscle relaxant therapy
     Dosage: 10 MG, 1X/DAY
     Dates: start: 20190404
  17. ASPIRIN [Concomitant]
     Active Substance: ASPIRIN
     Dosage: UNK
  18. ELIQUIS [Concomitant]
     Active Substance: APIXABAN
     Dosage: UNK
  19. METFORMIN [Concomitant]
     Active Substance: METFORMIN HYDROCHLORIDE
     Dosage: 500 MG
  20. UNIX [Concomitant]
     Dosage: UNK
  21. GLIMEPIRIDE [Concomitant]
     Active Substance: GLIMEPIRIDE
     Dosage: 2 MG, 1X/DAY
  22. TENOFOVIR DISOPROXIL FUMARATE [Concomitant]
     Active Substance: TENOFOVIR DISOPROXIL FUMARATE
     Dosage: UNK

REACTIONS (15)
  - Gastrooesophageal reflux disease [Unknown]
  - Spinal fracture [Not Recovered/Not Resolved]
  - Gastric infection [Not Recovered/Not Resolved]
  - Shock [Not Recovered/Not Resolved]
  - Drug ineffective [Unknown]
  - Product prescribing error [Unknown]
  - Constipation [Not Recovered/Not Resolved]
  - Bronchitis viral [Unknown]
  - Stress [Unknown]
  - Insomnia [Unknown]
  - Malaise [Not Recovered/Not Resolved]
  - Skin discolouration [Unknown]
  - Gastric disorder [Unknown]
  - Abdominal pain upper [Unknown]
  - Gastrointestinal pain [Unknown]

NARRATIVE: CASE EVENT DATE: 20190101
